FAERS Safety Report 5952395-5 (Version None)
Quarter: 2008Q4

REPORT INFORMATION
  Report Type: 
  Country: None (occurrence: None)
  Receive Date: 20081113
  Receipt Date: 20081104
  Transmission Date: 20090506
  Serious: Yes (Hospitalization, Other)
  Sender: FDA-Public Use
  Company Number: FR-GILEAD-2008-0016477

PATIENT
  Sex: Female

DRUGS (4)
  1. TRUVADA [Suspect]
     Indication: HIV INFECTION
     Route: 048
     Dates: start: 20080418, end: 20080424
  2. TRUVADA [Suspect]
     Dates: start: 20080909, end: 20080921
  3. VIRAMUNE [Concomitant]
     Indication: HIV INFECTION
     Route: 048
     Dates: start: 20080418, end: 20080424
  4. SUSTIVA [Concomitant]
     Indication: HIV INFECTION
     Dates: start: 20080909, end: 20080921

REACTIONS (5)
  - BLOOD LACTATE DEHYDROGENASE INCREASED [None]
  - EYELID OEDEMA [None]
  - PYREXIA [None]
  - TOXIC SKIN ERUPTION [None]
  - TRANSAMINASES INCREASED [None]
